FAERS Safety Report 7281947-8 (Version None)
Quarter: 2011Q1

REPORT INFORMATION
  Report Type: 
  Country: None (occurrence: None)
  Receive Date: 20110208
  Receipt Date: 20110126
  Transmission Date: 20110831
  Serious: Yes (Other)
  Sender: FDA-Public Use
  Company Number: AR-MYLANLABS-2011S1001948

PATIENT
  Age: 37 Year
  Sex: Male

DRUGS (4)
  1. CYCLOSERINE [Suspect]
     Indication: TUBERCULOSIS
     Route: 065
  2. MOXIFLOXACIN [Suspect]
     Indication: TUBERCULOSIS
     Route: 065
  3. LINEZOLID [Suspect]
     Indication: TUBERCULOSIS
     Route: 065
  4. THIORIDAZINE [Suspect]
     Indication: TUBERCULOSIS
     Route: 065

REACTIONS (1)
  - OPTIC NEURITIS [None]
